FAERS Safety Report 10044897 (Version 4)
Quarter: 2014Q2

REPORT INFORMATION
  Report Type: Spontaneous
  Country: US (occurrence: US)
  Receive Date: 20140328
  Receipt Date: 20140618
  Transmission Date: 20141212
  Serious: No
  Sender: FDA-Public Use
  Company Number: US-009507513-1403USA012437

PATIENT
  Age: 24 Year
  Sex: Female
  Weight: 121.1 kg

DRUGS (2)
  1. NEXPLANON [Suspect]
     Dosage: 1 ROD/THREE YERAS
     Route: 059
     Dates: start: 20140324, end: 20140325
  2. NEXPLANON [Suspect]
     Dosage: UNK; INSERTED APPROXIMATELY 10MM FROM MEDIAL EPICONDYLE
     Route: 059

REACTIONS (2)
  - Device expulsion [Recovered/Resolved]
  - No adverse event [Unknown]
